FAERS Safety Report 20453029 (Version 4)
Quarter: 2022Q3

REPORT INFORMATION
  Report Type: Report from Study
  Country: US (occurrence: US)
  Receive Date: 20220210
  Receipt Date: 20220705
  Transmission Date: 20221026
  Serious: Yes (Other)
  Sender: FDA-Public Use
  Company Number: US-HORIZON THERAPEUTICS-HZN-2021-006831

PATIENT

DRUGS (3)
  1. PROCYSBI [Suspect]
     Active Substance: CYSTEAMINE BITARTRATE
     Indication: Cystinosis
     Dosage: 75 MG, (3 CAPSULES EVERY 12 HOURS)
     Route: 048
     Dates: start: 20151210
  2. PROCYSBI [Suspect]
     Active Substance: CYSTEAMINE BITARTRATE
     Indication: Amino acid metabolism disorder
     Dosage: 75 MG, (3 CAPSULES EVERY 12 HOURS)
     Route: 048
  3. PROCYSBI [Suspect]
     Active Substance: CYSTEAMINE BITARTRATE
     Dosage: 75 MG, (3 CAPSULES EVERY 12 HOURS)
     Route: 048

REACTIONS (5)
  - Faecaloma [Recovered/Resolved]
  - Flatulence [Unknown]
  - Vomiting [Unknown]
  - Gastroenteritis [Recovered/Resolved]
  - Blood potassium decreased [Unknown]

NARRATIVE: CASE EVENT DATE: 20210912
